FAERS Safety Report 12978227 (Version 1)
Quarter: 2016Q4

REPORT INFORMATION
  Report Type: Spontaneous
  Country: US (occurrence: US)
  Receive Date: 20161123
  Receipt Date: 20161123
  Transmission Date: 20170207
  Serious: No
  Sender: FDA-Public Use
  Company Number: None

PATIENT
  Age: 58 Year
  Sex: Female

DRUGS (3)
  1. COPAXONE [Suspect]
     Active Substance: GLATIRAMER ACETATE
     Indication: PARAPLEGIA
  2. COPAXONE [Suspect]
     Active Substance: GLATIRAMER ACETATE
     Indication: MUSCLE SPASMS
  3. COPAXONE [Suspect]
     Active Substance: GLATIRAMER ACETATE
     Indication: MULTIPLE SCLEROSIS

REACTIONS (3)
  - Nausea [None]
  - Therapy cessation [None]
  - Headache [None]

NARRATIVE: CASE EVENT DATE: 20161116
